FAERS Safety Report 16348865 (Version 2)
Quarter: 2019Q2

REPORT INFORMATION
  Report Type: Not Available
  Country: US (occurrence: US)
  Receive Date: 20190523
  Receipt Date: 20190625
  Transmission Date: 20190711
  Serious: Yes (Hospitalization)
  Sender: FDA-Public Use
  Company Number: US-NEUROCRINE BIOSCIENCES INC.-2019NBI01251

PATIENT
  Sex: Male

DRUGS (7)
  1. INGREZZA [Suspect]
     Active Substance: VALBENAZINE
     Indication: TARDIVE DYSKINESIA
     Route: 048
     Dates: start: 20170512, end: 20170523
  2. INGREZZA [Suspect]
     Active Substance: VALBENAZINE
     Route: 048
     Dates: start: 20170524, end: 20190425
  3. VITAMIN D3 [Concomitant]
     Active Substance: CHOLECALCIFEROL
     Dosage: DAILY
  4. VITAMIN B12 [Concomitant]
     Active Substance: CYANOCOBALAMIN
  5. TRAZODONE [Concomitant]
     Active Substance: TRAZODONE HYDROCHLORIDE
  6. DILTIAZEM. [Concomitant]
     Active Substance: DILTIAZEM
  7. LORAZEPAM. [Concomitant]
     Active Substance: LORAZEPAM
     Indication: ANTIDEPRESSANT THERAPY
     Dosage: AT NIGHT

REACTIONS (3)
  - Fall [Recovered/Resolved]
  - Rib fracture [Recovering/Resolving]
  - Skin laceration [Recovered/Resolved]

NARRATIVE: CASE EVENT DATE: 2019
